FAERS Safety Report 9992759 (Version 1)
Quarter: 2014Q1

REPORT INFORMATION
  Report Type: Spontaneous
  Country: ES (occurrence: ES)
  Receive Date: 20140310
  Receipt Date: 20140310
  Transmission Date: 20141002
  Serious: Yes (Other)
  Sender: FDA-Public Use
  Company Number: ES-BRISTOL-MYERS SQUIBB COMPANY-20351391

PATIENT
  Age: 53 Year
  Sex: Female

DRUGS (1)
  1. BYETTA [Suspect]
     Dosage: LAST DOSE UNTIL:20-DEC-2013
     Route: 058
     Dates: start: 20130705, end: 20131220

REACTIONS (2)
  - Abdominal pain [Recovering/Resolving]
  - Hyperlipasaemia [Recovering/Resolving]
